FAERS Safety Report 24666386 (Version 1)
Quarter: 2024Q4

REPORT INFORMATION
  Report Type: Spontaneous
  Country: KR (occurrence: KR)
  Receive Date: 20241126
  Receipt Date: 20241126
  Transmission Date: 20250114
  Serious: Yes (Death, Other)
  Sender: PFIZER
  Company Number: KR-PFIZER INC-PV202400150997

PATIENT
  Age: 29 Year
  Sex: Male

DRUGS (2)
  1. IDARUBICIN HYDROCHLORIDE [Suspect]
     Active Substance: IDARUBICIN HYDROCHLORIDE
     Indication: Acute myeloid leukaemia
     Dosage: UNK
  2. CYTARABINE [Suspect]
     Active Substance: CYTARABINE
     Indication: Acute myeloid leukaemia
     Dosage: UNK

REACTIONS (2)
  - Febrile neutropenia [Fatal]
  - Pneumonia [Fatal]
